FAERS Safety Report 7950895-X (Version None)
Quarter: 2011Q4

REPORT INFORMATION
  Report Type: 
  Country: None (occurrence: None)
  Receive Date: 20111201
  Receipt Date: 20111118
  Transmission Date: 20120403
  Serious: Yes (Hospitalization)
  Sender: FDA-Public Use
  Company Number: JP-JNJFOC-20111108408

PATIENT
  Sex: Male

DRUGS (3)
  1. ZITHROMAX [Suspect]
     Indication: PNEUMONIA
     Route: 048
     Dates: start: 20111017, end: 20111018
  2. LEVOFLOXACIN [Suspect]
     Indication: PNEUMONIA MYCOPLASMAL
     Route: 041
     Dates: start: 20111017, end: 20111020
  3. ACETAMINOPHEN [Suspect]
     Indication: ANTIPYRESIS
     Route: 048
     Dates: start: 20111014, end: 20111017

REACTIONS (1)
  - LIVER DISORDER [None]
